FAERS Safety Report 9860040 (Version 2)
Quarter: 2014Q1

REPORT INFORMATION
  Report Type: Spontaneous
  Country: MX (occurrence: MX)
  Receive Date: 20140131
  Receipt Date: 20140315
  Transmission Date: 20141002
  Serious: Yes (Death)
  Sender: FDA-Public Use
  Company Number: US-ASTRAZENECA-2014SE06227

PATIENT
  Sex: Male
  Weight: 2.2 kg

DRUGS (2)
  1. SYNAGIS [Suspect]
     Indication: BRONCHOPULMONARY DYSPLASIA
     Dosage: 3 DOSES, 15 MG/KG UNKNOWN FREQUENCY
     Route: 030
     Dates: start: 20131004, end: 20131108
  2. SYNAGIS [Suspect]
     Indication: HEART DISEASE CONGENITAL
     Dosage: 3 DOSES, 15 MG/KG UNKNOWN FREQUENCY
     Route: 030
     Dates: start: 20131004, end: 20131108

REACTIONS (2)
  - Atrial septal defect [Fatal]
  - Bronchopulmonary dysplasia [Fatal]
